FAERS Safety Report 7463925-9 (Version None)
Quarter: 2011Q2

REPORT INFORMATION
  Report Type: 
  Country: None (occurrence: None)
  Receive Date: 20110506
  Receipt Date: 20110427
  Transmission Date: 20111010
  Serious: Yes (Other)
  Sender: FDA-Public Use
  Company Number: AR-SANOFI-AVENTIS-2011SA025907

PATIENT
  Sex: Male

DRUGS (2)
  1. LANTUS [Suspect]
     Route: 058
  2. LANTUS [Suspect]

REACTIONS (3)
  - HYPOGLYCAEMIA [None]
  - BLINDNESS [None]
  - DIZZINESS [None]
